FAERS Safety Report 24625031 (Version 1)
Quarter: 2024Q4

REPORT INFORMATION
  Report Type: Spontaneous
  Country: DE (occurrence: DE)
  Receive Date: 20241115
  Receipt Date: 20241115
  Transmission Date: 20250115
  Serious: Yes (Hospitalization, Other)
  Sender: TEVA
  Company Number: DE-TEVA-VS-3263603

PATIENT
  Age: 95 Year
  Sex: Female

DRUGS (2)
  1. OXAZEPAM [Suspect]
     Active Substance: OXAZEPAM
     Indication: Product used for unknown indication
     Dosage: 1 TABLET DAILY
     Route: 065
     Dates: start: 20240309, end: 20240916
  2. OMEPRAZOLE [Suspect]
     Active Substance: OMEPRAZOLE
     Indication: Product used for unknown indication
     Route: 065

REACTIONS (14)
  - Epilepsy [Recovering/Resolving]
  - Gait disturbance [Recovered/Resolved]
  - Fall [Recovered/Resolved]
  - Speech disorder [Recovered/Resolved]
  - Weight decreased [Recovered/Resolved]
  - Dizziness [Unknown]
  - Product dispensing error [Unknown]
  - Cerebrovascular accident [Recovering/Resolving]
  - Cerebellar infarction [Recovering/Resolving]
  - Abscess [Recovering/Resolving]
  - General physical health deterioration [Recovered/Resolved]
  - Memory impairment [Unknown]
  - Wrong product administered [Unknown]
  - Product availability issue [Unknown]

NARRATIVE: CASE EVENT DATE: 20240101
